FAERS Safety Report 6150775-9 (Version None)
Quarter: 2009Q2

REPORT INFORMATION
  Report Type: 
  Country: None (occurrence: None)
  Receive Date: 20090409
  Receipt Date: 20090331
  Transmission Date: 20091009
  Serious: Yes (Other)
  Sender: FDA-Public Use
  Company Number: US-JNJCH-2009009080

PATIENT
  Sex: Male

DRUGS (1)
  1. VISINE EYE DROPS [Suspect]
     Indication: DRUG USE FOR UNKNOWN INDICATION
     Dosage: TEXT:ONE DROP IN BOTH EYES ONCE
     Route: 047
     Dates: start: 20090330, end: 20090330

REACTIONS (2)
  - CHROMATOPSIA [None]
  - VISUAL IMPAIRMENT [None]
